FAERS Safety Report 19198520 (Version 1)
Quarter: 2021Q2

REPORT INFORMATION
  Report Type: Spontaneous
  Country: US (occurrence: US)
  Receive Date: 20210428
  Receipt Date: 20210428
  Transmission Date: 20210717
  Serious: Yes (Disabling)
  Sender: FDA-Public Use
  Company Number: None

PATIENT
  Age: 75 Year
  Sex: Female
  Weight: 65.32 kg

DRUGS (16)
  1. TRAMADOL (ULTRAM GEN. FOR) [Suspect]
     Active Substance: TRAMADOL HYDROCHLORIDE
     Indication: ARTHRALGIA
     Dosage: ?          QUANTITY:20?;?
     Route: 048
     Dates: start: 20210408, end: 20210409
  2. MAGNESIUM [Concomitant]
     Active Substance: MAGNESIUM
  3. SUDAFED [Concomitant]
     Active Substance: PSEUDOEPHEDRINE HYDROCHLORIDE
  4. TRAMADOL (ULTRAM GEN. FOR) [Suspect]
     Active Substance: TRAMADOL HYDROCHLORIDE
     Indication: BACK PAIN
     Dosage: ?          QUANTITY:20?;?
     Route: 048
     Dates: start: 20210408, end: 20210409
  5. GLVCOSAMN [Concomitant]
  6. ACTEMINOPHEN [Concomitant]
  7. CALCIFONIN [Concomitant]
  8. NAPROXEN. [Concomitant]
     Active Substance: NAPROXEN
  9. CETRIZINE [Concomitant]
     Active Substance: CETIRIZINE HYDROCHLORIDE
  10. CITRACAL [Concomitant]
     Active Substance: CALCIUM CITRATE
  11. SENIOR VIT. [Concomitant]
  12. TRAMADOL (ULTRAM GEN. FOR) [Suspect]
     Active Substance: TRAMADOL HYDROCHLORIDE
     Indication: MYALGIA
     Dosage: ?          QUANTITY:20?;?
     Route: 048
     Dates: start: 20210408, end: 20210409
  13. FISH OIL [Concomitant]
     Active Substance: FISH OIL
  14. LUTEIN [Concomitant]
     Active Substance: LUTEIN
  15. CHRONDITIN [Concomitant]
  16. POTASSIUM [Concomitant]
     Active Substance: POTASSIUM

REACTIONS (2)
  - Dizziness [None]
  - Nausea [None]

NARRATIVE: CASE EVENT DATE: 20210408
